FAERS Safety Report 5829067-0 (Version None)
Quarter: 2008Q3

REPORT INFORMATION
  Report Type: 
  Country: None (occurrence: None)
  Receive Date: 20080731
  Receipt Date: 20080722
  Transmission Date: 20090109
  Serious: Yes (Other)
  Sender: FDA-Public Use
  Company Number: GB-ASTRAZENECA-2008GB01386

PATIENT
  Age: 51 Year
  Sex: Male

DRUGS (4)
  1. ATENOLOL [Suspect]
     Indication: HYPERTENSION
     Route: 048
  2. PROPRANOLOL [Suspect]
     Indication: MIGRAINE
     Route: 065
  3. HYDROCORTISONE [Concomitant]
  4. SILDENAFIL CITRATE [Concomitant]

REACTIONS (2)
  - HYPOPITUITARISM [None]
  - PITUITARY HAEMORRHAGE [None]
